FAERS Safety Report 9034462 (Version 1)
Quarter: 2012Q4

REPORT INFORMATION
  Report Type: Spontaneous
  Country: US (occurrence: None)
  Receive Date: 20121219
  Receipt Date: 20121219
  Transmission Date: 20130627
  Serious: Yes (Hospitalization)
  Sender: FDA-Public Use
  Company Number: 2012034152

PATIENT
  Age: 61 Year
  Sex: Female
  Weight: 79.38 kg

DRUGS (8)
  1. HIZENTRA [Suspect]
     Indication: IMMUNODEFICIENCY COMMON VARIABLE
     Dosage: (1x/week, over 1-2 hours)
     Route: 058
     Dates: start: 20121129, end: 20121129
  2. HIZENTRA [Suspect]
     Indication: IMMUNODEFICIENCY COMMON VARIABLE
     Dosage: (multiple sites over 1-2 hours)
     Route: 058
     Dates: start: 20121206, end: 20121206
  3. DIPHENHYDRAMINE (DIPHENHYDRAMINE) [Concomitant]
  4. LIDOCAINE/PRILOCAINE (EMLA /00675501/) [Concomitant]
  5. EPI-PEN (EPINEPHRINE HYDROCHLORIDE) [Concomitant]
  6. LMX (LIDOCAINE) [Concomitant]
  7. CORTEF (HYDROCORTISONE) [Concomitant]
  8. MULTIVITAMINS (MULTIVITAMINS) [Concomitant]

REACTIONS (5)
  - Fatigue [None]
  - Headache [None]
  - Pain [None]
  - Influenza like illness [None]
  - Pyrexia [None]
